FAERS Safety Report 18801783 (Version 1)
Quarter: 2021Q1

REPORT INFORMATION
  Report Type: Report from Study
  Country: None (occurrence: US)
  Receive Date: 20210128
  Receipt Date: 20210128
  Transmission Date: 20210419
  Serious: Yes (Other)
  Sender: FDA-Public Use
  Company Number: US-ABBVIE-21K-163-3742828-00

PATIENT
  Sex: Male

DRUGS (4)
  1. HUMIRA [Suspect]
     Active Substance: ADALIMUMAB
     Indication: CROHN^S DISEASE
     Route: 058
  2. HUMIRA [Suspect]
     Active Substance: ADALIMUMAB
     Dosage: CITRATE FREE?DAY 15
     Route: 058
     Dates: start: 20201230, end: 20201230
  3. HUMIRA [Suspect]
     Active Substance: ADALIMUMAB
     Indication: CROHN^S DISEASE
     Dosage: CITRATE FREE?DAY 1
     Route: 058
     Dates: start: 20201216, end: 20201216
  4. HUMIRA [Suspect]
     Active Substance: ADALIMUMAB
     Indication: CROHN^S DISEASE
     Dosage: CITRATE FREE
     Route: 058
     Dates: start: 20210113

REACTIONS (8)
  - Swelling [Unknown]
  - Injection site pain [Recovered/Resolved]
  - Weight decreased [Recovered/Resolved]
  - Pruritus [Unknown]
  - Hepatitis A [Unknown]
  - Suicidal ideation [Unknown]
  - Decreased appetite [Recovered/Resolved]
  - Crohn^s disease [Unknown]
